FAERS Safety Report 25395308 (Version 1)
Quarter: 2025Q2

REPORT INFORMATION
  Report Type: Spontaneous
  Country: US (occurrence: None)
  Receive Date: 20250604
  Receipt Date: 20250604
  Transmission Date: 20250716
  Serious: Yes (Hospitalization)
  Sender: FDA-CTU
  Company Number: None

PATIENT
  Age: 79 Year
  Sex: Male

DRUGS (10)
  1. ABIRATERONE [Suspect]
     Active Substance: ABIRATERONE
     Indication: Prostate cancer
     Dosage: FREQUENCY : DAILY;?
     Route: 048
     Dates: start: 20250524, end: 20250602
  2. ASPIRIN [Concomitant]
     Active Substance: ASPIRIN
  3. CILOSTAZOL [Concomitant]
     Active Substance: CILOSTAZOL
  4. EZETIMIBE [Concomitant]
     Active Substance: EZETIMIBE
  5. FAMOTIDINE [Concomitant]
     Active Substance: FAMOTIDINE
  6. JARDIANCE [Concomitant]
     Active Substance: EMPAGLIFLOZIN
  7. RIVAROXABAN [Concomitant]
     Active Substance: RIVAROXABAN
  8. TOLTERODINE TART ER [Concomitant]
  9. VALSARTAN [Concomitant]
     Active Substance: VALSARTAN
  10. PREDNISONE [Concomitant]
     Active Substance: PREDNISONE

REACTIONS (4)
  - Haemoglobin decreased [None]
  - Diarrhoea [None]
  - Tongue dry [None]
  - Vomiting [None]

NARRATIVE: CASE EVENT DATE: 20250603
